FAERS Safety Report 7486322-9 (Version None)
Quarter: 2011Q2

REPORT INFORMATION
  Report Type: 
  Country: None (occurrence: None)
  Receive Date: 20110517
  Receipt Date: 20110509
  Transmission Date: 20111010
  Serious: Yes (Other)
  Sender: FDA-Public Use
  Company Number: PHHY2011GB38388

PATIENT
  Age: 32 Year
  Sex: Female

DRUGS (4)
  1. PAROXETINE HCL [Suspect]
     Indication: DEPRESSION
     Dosage: 30 MG, UNK
     Route: 048
     Dates: start: 20110301
  2. ZOPICLONE [Concomitant]
     Indication: ANXIETY
     Dosage: 7.5 MG, UNK
     Route: 048
     Dates: start: 20110325
  3. PROPRANOLOL [Concomitant]
     Indication: ANXIETY
     Dosage: 80 MG, UNK
     Route: 048
     Dates: start: 20110325
  4. DIAZEPAM [Concomitant]
     Indication: ANXIETY
     Dosage: 5 MG, UNK
     Route: 048
     Dates: start: 20110325

REACTIONS (6)
  - ANXIETY [None]
  - PARAESTHESIA [None]
  - MALAISE [None]
  - PANIC ATTACK [None]
  - WITHDRAWAL SYNDROME [None]
  - BURNING SENSATION [None]
